FAERS Safety Report 10538286 (Version 2)
Quarter: 2014Q4

REPORT INFORMATION
  Report Type: Spontaneous
  Country: AU (occurrence: AU)
  Receive Date: 20141023
  Receipt Date: 20141023
  Transmission Date: 20150529
  Serious: Yes (Hospitalization, Other)
  Sender: FDA-Public Use
  Company Number: AU-NOVOPROD-423574

PATIENT
  Age: 15 Year
  Sex: Male
  Weight: 50 kg

DRUGS (3)
  1. NOVOMIX 30 [Suspect]
     Active Substance: INSULIN ASPART
     Dosage: 300 UNITS (OVERDOSE)
     Route: 065
     Dates: start: 20130715
  2. ONDANSETRON [Concomitant]
     Active Substance: ONDANSETRON
     Indication: NAUSEA
     Dosage: UNK
     Route: 042
  3. NOVOMIX 30 [Suspect]
     Active Substance: INSULIN ASPART
     Indication: TYPE 1 DIABETES MELLITUS
     Dosage: 65UNITS (DIVIDED BD)
     Route: 058

REACTIONS (3)
  - Hypoglycaemia [Recovered/Resolved]
  - Intentional overdose [Unknown]
  - Suicide attempt [Recovered/Resolved]

NARRATIVE: CASE EVENT DATE: 20130715
